FAERS Safety Report 4989633-1 (Version None)
Quarter: 2006Q2

REPORT INFORMATION
  Report Type: 
  Country: None (occurrence: None)
  Receive Date: 20060502
  Receipt Date: 20050609
  Transmission Date: 20061013
  Serious: Yes (Hospitalization, Other)
  Sender: FDA-Public Use
  Company Number: US-MERCK-0506USA01545

PATIENT
  Age: 66 Year
  Sex: Female
  Weight: 75 kg

DRUGS (5)
  1. VIOXX [Suspect]
     Indication: ARTHRITIS
     Route: 048
     Dates: start: 20010111, end: 20030815
  2. VIOXX [Suspect]
     Route: 048
     Dates: start: 20010111, end: 20030815
  3. MOTRIN [Concomitant]
     Route: 065
  4. PROZAC [Suspect]
     Route: 065
     Dates: end: 20030601
  5. WELLBUTRIN [Suspect]
     Route: 065
     Dates: end: 20030601

REACTIONS (23)
  - ABDOMINAL DISTENSION [None]
  - AGITATION [None]
  - ANXIETY [None]
  - ARTHRALGIA [None]
  - BENIGN BREAST NEOPLASM [None]
  - CEREBROVASCULAR ACCIDENT [None]
  - CONSTIPATION [None]
  - DIVERTICULITIS [None]
  - DIZZINESS [None]
  - HAEMATOCRIT DECREASED [None]
  - HYPOKALAEMIA [None]
  - INCISIONAL HERNIA [None]
  - MIGRAINE [None]
  - MUSCLE SPASMS [None]
  - OCCULT BLOOD POSITIVE [None]
  - PAIN [None]
  - ROTATOR CUFF SYNDROME [None]
  - SMALL INTESTINAL OBSTRUCTION [None]
  - STRESS INCONTINENCE [None]
  - UMBILICAL HERNIA [None]
  - URINARY TRACT INFECTION [None]
  - URINE OUTPUT DECREASED [None]
  - VOMITING [None]
